FAERS Safety Report 5562145-2 (Version None)
Quarter: 2007Q4

REPORT INFORMATION
  Report Type: 
  Country: None (occurrence: None)
  Receive Date: 20071215
  Receipt Date: 20061115
  Transmission Date: 20080405
  Serious: No
  Sender: FDA-Public Use
  Company Number: US-AMGEN-US195801

PATIENT
  Sex: Male

DRUGS (3)
  1. ENBREL [Suspect]
     Indication: PSORIATIC ARTHROPATHY
     Route: 058
     Dates: start: 20061001
  2. ENBREL [Suspect]
     Indication: PSORIASIS
  3. INSULIN [Concomitant]
     Route: 065
     Dates: start: 20050101

REACTIONS (1)
  - BLOOD GLUCOSE INCREASED [None]
